FAERS Safety Report 9805205 (Version 5)
Quarter: 2014Q2

REPORT INFORMATION
  Report Type: Spontaneous
  Country: US (occurrence: US)
  Receive Date: 20140109
  Receipt Date: 20140414
  Transmission Date: 20141212
  Serious: Yes (Hospitalization, Other)
  Sender: FDA-Public Use
  Company Number: US-BAXTER-2013BAX053100

PATIENT
  Sex: Male

DRUGS (1)
  1. DIANEAL LOW CALCIUM [Suspect]
     Indication: PERITONEAL DIALYSIS
     Route: 033
     Dates: start: 2012

REACTIONS (5)
  - Cardiogenic shock [Not Recovered/Not Resolved]
  - Myocardial infarction [Unknown]
  - Localised intraabdominal fluid collection [Unknown]
  - Syncope [Recovered/Resolved]
  - Hyperkalaemia [Recovered/Resolved]
